FAERS Safety Report 6717969 (Version 12)
Quarter: 2012Q4

REPORT INFORMATION
  Report Type: 
  Country: GB (occurrence: GB)
  Receive Date: 20080804
  Receipt Date: 20121129
  Transmission Date: 20130627
  Serious: Yes (Other)
  Sender: FDA-Public Use
  Company Number: PHFR2008GB01387

PATIENT
  Age: 45 Year
  Sex: Male

DRUGS (4)
  1. CLOZARIL [Suspect]
     Indication: SCHIZOPHRENIA
     Dosage: 550 mg, UNK
     Route: 048
     Dates: start: 19990601
  2. AMISULPRIDE [Suspect]
     Indication: SCHIZOPHRENIA
  3. HALOPERIDOL [Concomitant]
  4. FLUOXETINE [Concomitant]

REACTIONS (12)
  - Hepatitis C [Not Recovered/Not Resolved]
  - Hepatic cirrhosis [Unknown]
  - Abdominal discomfort [Unknown]
  - Alanine aminotransferase increased [Unknown]
  - Blood alkaline phosphatase increased [Unknown]
  - Hallucination, visual [Recovering/Resolving]
  - Antipsychotic drug level increased [Unknown]
  - Neutrophil count decreased [Not Recovered/Not Resolved]
  - Platelet count decreased [Not Recovered/Not Resolved]
  - Mental disorder [Not Recovered/Not Resolved]
  - Hyperhidrosis [Unknown]
  - White blood cell count decreased [Not Recovered/Not Resolved]
